FAERS Safety Report 8505653-4 (Version None)
Quarter: 2012Q3

REPORT INFORMATION
  Report Type: 
  Country: None (occurrence: None)
  Receive Date: 20120712
  Receipt Date: 20120706
  Transmission Date: 20120928
  Serious: Yes (Death, Other)
  Sender: FDA-Public Use
  Company Number: JP-ELI_LILLY_AND_COMPANY-JP201206006697

PATIENT
  Age: 83 Year
  Sex: Female

DRUGS (25)
  1. POTASSIUM CHLORIDE [Concomitant]
     Dosage: 1 DF, QID
     Route: 042
     Dates: start: 20120518, end: 20120520
  2. VEEN D [Concomitant]
     Route: 042
  3. LOXOMARIN [Concomitant]
     Route: 048
  4. MUCOSTA [Concomitant]
     Route: 048
  5. LEVOFLOXACIN [Concomitant]
     Route: 048
  6. NEOAMIYU [Concomitant]
     Route: 042
  7. SODIUM CHLORIDE [Concomitant]
     Route: 042
  8. FAMOTIDINE [Concomitant]
     Dosage: 10 MG, QD
     Route: 048
  9. LASIX [Concomitant]
     Dosage: 10 MG, EACH MORNING
     Route: 042
  10. MAGMITT [Concomitant]
     Indication: CONSTIPATION
     Dosage: 1 DF, TID
     Route: 048
     Dates: start: 20120518, end: 20120606
  11. MERISLON [Concomitant]
     Indication: CEREBRAL INFARCTION
     Dosage: 2 DF, TID
     Route: 048
     Dates: start: 20120519, end: 20120621
  12. CEROCRAL [Concomitant]
     Indication: CEREBRAL INFARCTION
     Dosage: 1 DF, TID
     Route: 048
     Dates: start: 20120519, end: 20120621
  13. ADOFEED [Concomitant]
     Route: 062
  14. CLARITHROMYCIN [Concomitant]
     Dosage: 400 MG, BID
     Route: 048
  15. AMOBAN [Concomitant]
     Route: 048
  16. PREDNISOLONE [Concomitant]
     Dosage: 10 MG, EACH MORNING
     Route: 048
  17. POTASSIUM CHLORIDE [Concomitant]
     Dosage: 1 DF, BID
     Route: 042
     Dates: start: 20120521, end: 20120523
  18. KREMEZIN [Concomitant]
     Route: 048
  19. LOXONIN [Concomitant]
     Route: 062
  20. FORTEO [Suspect]
     Indication: OSTEOPOROSIS
     Dosage: 20 UG, QD
     Route: 058
     Dates: start: 20120525, end: 20120618
  21. POTASSIUM CHLORIDE [Concomitant]
     Dosage: 1 DF, QD
     Route: 042
     Dates: start: 20120524, end: 20120530
  22. ADENOSINE [Concomitant]
     Indication: CEREBRAL INFARCTION
     Dosage: 1 G, TID
     Route: 048
     Dates: start: 20120519, end: 20120621
  23. LASIX [Concomitant]
     Route: 048
  24. PURSENNID                          /00571902/ [Concomitant]
     Route: 048
  25. PHYSIOSOL 3 [Concomitant]
     Route: 042

REACTIONS (9)
  - ANAEMIA [None]
  - CEREBRAL HAEMORRHAGE [None]
  - TOOTHACHE [None]
  - HYPOALBUMINAEMIA [None]
  - DECREASED APPETITE [None]
  - ABDOMINAL DISTENSION [None]
  - APTYALISM [None]
  - HISTIOCYTOSIS HAEMATOPHAGIC [None]
  - C-REACTIVE PROTEIN INCREASED [None]
